FAERS Safety Report 6584199-7 (Version None)
Quarter: 2010Q1

REPORT INFORMATION
  Report Type: 
  Country: None (occurrence: None)
  Receive Date: 20100216
  Receipt Date: 20100111
  Transmission Date: 20100710
  Serious: No
  Sender: FDA-Public Use
  Company Number: US-ABBOTT-10P-163-0618633-00

PATIENT
  Sex: Male
  Weight: 111.23 kg

DRUGS (6)
  1. SIMCOR [Suspect]
     Indication: HYPERLIPIDAEMIA
     Dates: start: 20100109
  2. NIASPAN [Concomitant]
     Indication: DRUG USE FOR UNKNOWN INDICATION
     Dosage: AS DIRECTED
  3. TEROZOSINA [Concomitant]
     Indication: DRUG USE FOR UNKNOWN INDICATION
     Dosage: AS DIRECTED
  4. LOVAZA [Concomitant]
     Indication: DRUG USE FOR UNKNOWN INDICATION
     Dosage: AS DIRECTED
  5. ASPIRIN [Concomitant]
     Indication: DRUG USE FOR UNKNOWN INDICATION
     Dosage: AS DIRECTED
  6. MULTI-VITAMIN [Concomitant]
     Indication: DRUG USE FOR UNKNOWN INDICATION
     Dosage: AS DIRECTED

REACTIONS (1)
  - FLUSHING [None]
